FAERS Safety Report 13532185 (Version 1)
Quarter: 2017Q2

REPORT INFORMATION
  Report Type: Spontaneous
  Country: FR (occurrence: FR)
  Receive Date: 20170510
  Receipt Date: 20170510
  Transmission Date: 20170830
  Serious: Yes (Hospitalization)
  Sender: FDA-Public Use
  Company Number: FR-PFIZER INC-2017197961

PATIENT
  Age: 34 Year
  Sex: Female

DRUGS (6)
  1. GONAL-F [Suspect]
     Active Substance: FOLLITROPIN
     Indication: IN VITRO FERTILISATION
     Dosage: 225 IU, DAILY
     Route: 058
     Dates: start: 20161202, end: 20161205
  2. GONADOTROPHINE CHORIONIQUE [Suspect]
     Active Substance: GONADOTROPHIN, CHORIONIC
     Indication: IN VITRO FERTILISATION
     Dosage: 5000 IU, 1X/DAY
     Route: 030
     Dates: start: 20161212, end: 20161212
  3. GONADOTROPHINE CHORIONIQUE [Suspect]
     Active Substance: GONADOTROPHIN, CHORIONIC
     Indication: OVARIAN HYPERSTIMULATION SYNDROME
  4. SYNAREL [Suspect]
     Active Substance: NAFARELIN ACETATE
     Indication: IN VITRO FERTILISATION
     Dosage: 2 DF, DAILY (2 SPRAYSDAILY)
     Route: 045
     Dates: start: 20161202, end: 20161211
  5. SYNAREL [Suspect]
     Active Substance: NAFARELIN ACETATE
     Indication: OVARIAN HYPERSTIMULATION SYNDROME
  6. GONAL-F [Suspect]
     Active Substance: FOLLITROPIN
     Indication: OVARIAN HYPERSTIMULATION SYNDROME
     Dosage: 300 IU, DAILY
     Route: 058
     Dates: start: 20161206, end: 20161211

REACTIONS (3)
  - Pregnancy [None]
  - Adnexal torsion [Recovered/Resolved with Sequelae]
  - Ovarian hyperstimulation syndrome [Recovered/Resolved with Sequelae]

NARRATIVE: CASE EVENT DATE: 20170118
